FAERS Safety Report 8616220-6 (Version None)
Quarter: 2012Q3

REPORT INFORMATION
  Report Type: 
  Country: None (occurrence: None)
  Receive Date: 20120823
  Receipt Date: 20120814
  Transmission Date: 20120928
  Serious: Yes (Other)
  Sender: FDA-Public Use
  Company Number: GB-ASTRAZENECA-2012SE57458

PATIENT
  Age: 58 Year
  Sex: Male
  Weight: 95.2 kg

DRUGS (2)
  1. LEVOTHYROXINE SODIUM [Concomitant]
  2. ROSUVASTATIN [Suspect]
     Indication: HYPERCHOLESTEROLAEMIA
     Route: 048

REACTIONS (2)
  - LIMB DISCOMFORT [None]
  - PAIN IN EXTREMITY [None]
